FAERS Safety Report 7322720-1 (Version None)
Quarter: 2011Q1

REPORT INFORMATION
  Report Type: 
  Country: None (occurrence: None)
  Receive Date: 20110301
  Receipt Date: 20100831
  Transmission Date: 20110831
  Serious: No
  Sender: FDA-Public Use
  Company Number: A0875571A

PATIENT
  Age: 47 Year
  Sex: Male

DRUGS (4)
  1. ZIAGEN [Suspect]
     Indication: HIV INFECTION
     Dosage: 6ML PER DAY
     Route: 048
     Dates: start: 20100601
  2. EPIVIR [Concomitant]
  3. KALETRA [Concomitant]
  4. IMODIUM [Concomitant]

REACTIONS (2)
  - NAUSEA [None]
  - VOMITING [None]
